FAERS Safety Report 8352741-1 (Version None)
Quarter: 2012Q2

REPORT INFORMATION
  Report Type: 
  Country: None (occurrence: None)
  Receive Date: 20120509
  Receipt Date: 20120502
  Transmission Date: 20120825
  Serious: Yes (Hospitalization)
  Sender: FDA-Public Use
  Company Number: 2012SP021385

PATIENT
  Age: 50 Year
  Sex: Male
  Weight: 82.4 kg

DRUGS (53)
  1. RIBAVIRIN [Suspect]
     Indication: HEPATITIS C
     Dosage: 1000 MG, QD, PO
     Route: 048
     Dates: start: 20120125, end: 20120131
  2. RIBAVIRIN [Suspect]
     Indication: HEPATITIS C
     Dosage: 1000 MG, QD, PO
     Route: 048
     Dates: start: 20120208, end: 20120214
  3. RIBAVIRIN [Suspect]
     Indication: HEPATITIS C
     Dosage: 1000 MG, QD, PO
     Route: 048
     Dates: start: 20120301, end: 20120307
  4. RIBAVIRIN [Suspect]
     Indication: HEPATITIS C
     Dosage: 1000 MG, QD, PO
     Route: 048
     Dates: start: 20120315, end: 20120321
  5. RIBAVIRIN [Suspect]
     Indication: HEPATITIS C
     Dosage: 1000 MG, QD, PO
     Route: 048
     Dates: start: 20120328, end: 20120418
  6. RIBAVIRIN [Suspect]
     Indication: HEPATITIS C
     Dosage: 1000 MG, QD, PO
     Route: 048
     Dates: start: 20120112, end: 20120118
  7. RIBAVIRIN [Suspect]
     Indication: HEPATITIS C
     Dosage: 1000 MG, QD, PO
     Route: 048
     Dates: start: 20120118, end: 20120124
  8. RIBAVIRIN [Suspect]
     Indication: HEPATITIS C
     Dosage: 1000 MG, QD, PO
     Route: 048
     Dates: start: 20120201, end: 20120208
  9. RIBAVIRIN [Suspect]
     Indication: HEPATITIS C
     Dosage: 1000 MG, QD, PO
     Route: 048
     Dates: start: 20120222, end: 20120228
  10. RIBAVIRIN [Suspect]
     Indication: HEPATITIS C
     Dosage: 1000 MG, QD, PO
     Route: 048
     Dates: start: 20120105, end: 20120111
  11. RIBAVIRIN [Suspect]
     Indication: HEPATITIS C
     Dosage: 1000 MG, QD, PO
     Route: 048
     Dates: start: 20120104, end: 20120110
  12. RIBAVIRIN [Suspect]
     Indication: HEPATITIS C
     Dosage: 1000 MG, QD, PO
     Route: 048
     Dates: start: 20120322, end: 20120327
  13. RIBAVIRIN [Suspect]
     Indication: HEPATITIS C
     Dosage: 1000 MG, QD, PO
     Route: 048
     Dates: start: 20120104, end: 20120104
  14. RIBAVIRIN [Suspect]
     Indication: HEPATITIS C
     Dosage: 1000 MG, QD, PO
     Route: 048
     Dates: start: 20120215, end: 20120221
  15. RIBAVIRIN [Suspect]
     Indication: HEPATITIS C
     Dosage: 1000 MG, QD, PO
     Route: 048
     Dates: start: 20120111, end: 20120117
  16. RIBAVIRIN [Suspect]
     Indication: HEPATITIS C
     Dosage: 1000 MG, QD, PO
     Route: 048
     Dates: start: 20120119, end: 20120125
  17. RIBAVIRIN [Suspect]
     Indication: HEPATITIS C
     Dosage: 1000 MG, QD, PO
     Route: 048
     Dates: start: 20120126, end: 20120131
  18. RIBAVIRIN [Suspect]
     Indication: HEPATITIS C
     Dosage: 1000 MG, QD, PO
     Route: 048
     Dates: start: 20120223, end: 20120229
  19. RIBAVIRIN [Suspect]
     Indication: HEPATITIS C
     Dosage: 1000 MG, QD, PO
     Route: 048
     Dates: start: 20120314, end: 20120320
  20. RIBAVIRIN [Suspect]
     Indication: HEPATITIS C
     Dosage: 1000 MG, QD, PO
     Route: 048
     Dates: start: 20120209, end: 20120215
  21. RIBAVIRIN [Suspect]
     Indication: HEPATITIS C
     Dosage: 1000 MG, QD, PO
     Route: 048
     Dates: start: 20120308, end: 20120314
  22. RIBAVIRIN [Suspect]
     Indication: HEPATITIS C
     Dosage: 1000 MG, QD, PO
     Route: 048
     Dates: start: 20120201, end: 20120207
  23. RIBAVIRIN [Suspect]
     Indication: HEPATITIS C
     Dosage: 1000 MG, QD, PO
     Route: 048
     Dates: start: 20120216, end: 20120222
  24. RIBAVIRIN [Suspect]
     Indication: HEPATITIS C
     Dosage: 1000 MG, QD, PO
     Route: 048
     Dates: start: 20120229, end: 20120306
  25. RIBAVIRIN [Suspect]
     Indication: HEPATITIS C
     Dosage: 1000 MG, QD, PO
     Route: 048
     Dates: start: 20120307, end: 20120313
  26. RIBAVIRIN [Suspect]
     Indication: HEPATITIS C
     Dosage: 1000 MG, QD, PO
     Route: 048
     Dates: start: 20120321, end: 20120327
  27. PEGINTERFERON ALFA-2B [Suspect]
     Indication: HEPATITIS C
     Dosage: 120 MCG,QW,SC
     Route: 058
     Dates: start: 20120104, end: 20120104
  28. PEGINTERFERON ALFA-2B [Suspect]
     Indication: HEPATITIS C
     Dosage: 120 MCG,QW,SC
     Route: 058
     Dates: start: 20120208, end: 20120208
  29. PEGINTERFERON ALFA-2B [Suspect]
     Indication: HEPATITIS C
     Dosage: 120 MCG,QW,SC
     Route: 058
     Dates: start: 20120321, end: 20120321
  30. PEGINTERFERON ALFA-2B [Suspect]
     Indication: HEPATITIS C
     Dosage: 120 MCG,QW,SC
     Route: 058
     Dates: start: 20120111, end: 20120111
  31. PEGINTERFERON ALFA-2B [Suspect]
     Indication: HEPATITIS C
     Dosage: 120 MCG,QW,SC
     Route: 058
     Dates: start: 20120201, end: 20120201
  32. PEGINTERFERON ALFA-2B [Suspect]
     Indication: HEPATITIS C
     Dosage: 120 MCG,QW,SC
     Route: 058
     Dates: start: 20120118, end: 20120118
  33. PEGINTERFERON ALFA-2B [Suspect]
     Indication: HEPATITIS C
     Dosage: 120 MCG,QW,SC
     Route: 058
     Dates: start: 20120215, end: 20120215
  34. PEGINTERFERON ALFA-2B [Suspect]
     Indication: HEPATITIS C
     Dosage: 120 MCG,QW,SC
     Route: 058
     Dates: start: 20120307, end: 20120307
  35. PEGINTERFERON ALFA-2B [Suspect]
     Indication: HEPATITIS C
     Dosage: 120 MCG,QW,SC
     Route: 058
     Dates: start: 20120314, end: 20120314
  36. PEGINTERFERON ALFA-2B [Suspect]
     Indication: HEPATITIS C
     Dosage: 120 MCG,QW,SC
     Route: 058
     Dates: start: 20120404, end: 20120404
  37. PEGINTERFERON ALFA-2B [Suspect]
     Indication: HEPATITIS C
     Dosage: 120 MCG,QW,SC
     Route: 058
     Dates: start: 20120418, end: 20120418
  38. PEGINTERFERON ALFA-2B [Suspect]
     Indication: HEPATITIS C
     Dosage: 120 MCG,QW,SC
     Route: 058
     Dates: start: 20120222, end: 20120222
  39. PEGINTERFERON ALFA-2B [Suspect]
     Indication: HEPATITIS C
     Dosage: 120 MCG,QW,SC
     Route: 058
     Dates: start: 20120229, end: 20120229
  40. PEGINTERFERON ALFA-2B [Suspect]
     Indication: HEPATITIS C
     Dosage: 120 MCG,QW,SC
     Route: 058
     Dates: start: 20120328, end: 20120328
  41. PEGINTERFERON ALFA-2B [Suspect]
     Indication: HEPATITIS C
     Dosage: 120 MCG,QW,SC
     Route: 058
     Dates: start: 20120411, end: 20120411
  42. PEGINTERFERON ALFA-2B [Suspect]
     Indication: HEPATITIS C
     Dosage: 120 MCG,QW,SC
     Route: 058
     Dates: start: 20120501, end: 20120501
  43. PEGINTERFERON ALFA-2B [Suspect]
     Indication: HEPATITIS C
     Dosage: 120 MCG,QW,SC
     Route: 058
     Dates: start: 20120125, end: 20120201
  44. ALLOPURINOL [Concomitant]
  45. NORVASC [Concomitant]
  46. PRAVASTATIN SODIUM [Concomitant]
  47. PRAVASTATIN SODIUM [Concomitant]
  48. EPINASTINE HYDROCHLORIDE [Concomitant]
  49. MK-7009 (INVESTIGATIONAL DRUG) [Suspect]
     Indication: HEPATITIS C
     Dosage: 300 MG, BID
     Dates: start: 20120104, end: 20120327
  50. NORVASC [Concomitant]
  51. TERRA-CORTRIL [Concomitant]
  52. FLURBIPROFEN [Concomitant]
  53. ACETAMINOPHEN [Concomitant]

REACTIONS (6)
  - APPENDICITIS [None]
  - PNEUMONIA ASPIRATION [None]
  - FLATULENCE [None]
  - PYREXIA [None]
  - VOMITING [None]
  - INTESTINAL OBSTRUCTION [None]
